FAERS Safety Report 5929595-3 (Version None)
Quarter: 2008Q4

REPORT INFORMATION
  Report Type: 
  Country: None (occurrence: None)
  Receive Date: 20081024
  Receipt Date: 20081014
  Transmission Date: 20090506
  Serious: Yes (Other)
  Sender: FDA-Public Use
  Company Number: US-ABBOTT-08P-163-0481515-00

PATIENT
  Sex: Female

DRUGS (1)
  1. LUPRON [Suspect]
     Indication: UTERINE LEIOMYOMA
     Route: 030
     Dates: start: 20070601, end: 20071201

REACTIONS (4)
  - BREAST CANCER [None]
  - ERYTHEMA [None]
  - MUSCULAR WEAKNESS [None]
  - WEIGHT INCREASED [None]
